FAERS Safety Report 25138868 (Version 1)
Quarter: 2025Q1

REPORT INFORMATION
  Report Type: Spontaneous
  Country: DE (occurrence: DE)
  Receive Date: 20250331
  Receipt Date: 20250331
  Transmission Date: 20250408
  Serious: Yes (Other)
  Sender: ABBVIE
  Company Number: DE-EMB-M202309489-1

PATIENT
  Sex: Female
  Weight: 2 kg

DRUGS (6)
  1. MESALAMINE [Suspect]
     Active Substance: MESALAMINE
     Indication: Colitis ulcerative
     Dosage: 4500 MG/D ORALLY, 1000 MG/D RECTALLY
     Route: 064
     Dates: start: 202310, end: 202404
  2. MESALAMINE [Suspect]
     Active Substance: MESALAMINE
     Indication: Colitis ulcerative
     Dosage: 4500 MG/D ORALLY, 1000 MG/D RECTALLY
     Route: 064
     Dates: start: 202310, end: 202404
  3. BUDESONIDE [Suspect]
     Active Substance: BUDESONIDE
     Indication: Colitis ulcerative
     Dosage: REKTALSCHAUM
     Route: 064
     Dates: start: 202310, end: 202402
  4. ASPIRIN [Concomitant]
     Active Substance: ASPIRIN
     Indication: Prophylaxis
     Dosage: IMPRECISE DATES
     Route: 064
     Dates: start: 202310, end: 202311
  5. PREDNISOLONE [Suspect]
     Active Substance: PREDNISOLONE
     Indication: Colitis ulcerative
     Route: 064
     Dates: start: 202311, end: 202402
  6. PREDNISOLONE [Suspect]
     Active Substance: PREDNISOLONE
     Indication: Colitis ulcerative
     Dosage: IV-THERAPY STARTED WITH 50 MG/D, CONTINUED FOR 4 DAYS, PROBABLY WITH DECREASING DOSES
     Route: 064
     Dates: start: 202311, end: 202311

REACTIONS (2)
  - Small for dates baby [Recovered/Resolved]
  - Foetal exposure during pregnancy [Unknown]

NARRATIVE: CASE EVENT DATE: 20240401
